FAERS Safety Report 6469087-9 (Version None)
Quarter: 2009Q4

REPORT INFORMATION
  Report Type: 
  Country: None (occurrence: None)
  Receive Date: 20091201
  Receipt Date: 20091118
  Transmission Date: 20100525
  Serious: Yes (Hospitalization, Other)
  Sender: FDA-Public Use
  Company Number: VAL_00333_2009

PATIENT
  Age: 26 Year
  Sex: Female

DRUGS (2)
  1. CARBAMAZEPINE [Suspect]
     Indication: BACK PAIN
     Dosage: (DF)
  2. CARBAMAZEPINE [Suspect]
     Indication: OFF LABEL USE
     Dosage: (DF)

REACTIONS (15)
  - ANGIOTENSIN CONVERTING ENZYME INCREASED [None]
  - DERMATITIS EXFOLIATIVE [None]
  - DRUG RASH WITH EOSINOPHILIA AND SYSTEMIC SYMPTOMS [None]
  - FACE OEDEMA [None]
  - HEPATITIS [None]
  - HEPATOSPLENOMEGALY [None]
  - HUMAN HERPESVIRUS 6 INFECTION [None]
  - INTERSTITIAL GRANULOMATOUS DERMATITIS [None]
  - LEUKOCYTOSIS [None]
  - LIP ULCERATION [None]
  - LYMPHADENOPATHY [None]
  - OCULAR ICTERUS [None]
  - PRURITUS [None]
  - PYREXIA [None]
  - RASH MACULO-PAPULAR [None]
